FAERS Safety Report 5409601-5 (Version None)
Quarter: 2007Q3

REPORT INFORMATION
  Report Type: 
  Country: None (occurrence: None)
  Receive Date: 20070807
  Receipt Date: 20070807
  Transmission Date: 20080115
  Serious: Yes (Other)
  Sender: FDA-Public Use
  Company Number: None

PATIENT

DRUGS (4)
  1. CALAMINE [Suspect]
     Indication: PAIN
     Dosage: 060
     Dates: start: 20070708
  2. CALAMINE [Suspect]
     Indication: PRURITUS
     Dosage: 060
     Dates: start: 20070708
  3. CALAMINE [Suspect]
     Indication: PAIN
     Dosage: 060
     Dates: start: 20070709
  4. CALAMINE [Suspect]
     Indication: PRURITUS
     Dosage: 060
     Dates: start: 20070709

REACTIONS (8)
  - ACCIDENTAL EXPOSURE [None]
  - BURNING SENSATION [None]
  - COUGH [None]
  - LOSS OF CONSCIOUSNESS [None]
  - PARAESTHESIA ORAL [None]
  - RESPIRATORY TRACT CONGESTION [None]
  - VISUAL DISTURBANCE [None]
  - WHEEZING [None]
